FAERS Safety Report 18024619 (Version 3)
Quarter: 2020Q3

REPORT INFORMATION
  Report Type: Report from Study
  Country: None (occurrence: RO)
  Receive Date: 20200714
  Receipt Date: 20200824
  Transmission Date: 20201103
  Serious: Yes (Death, Hospitalization, Other)
  Sender: FDA-Public Use
  Company Number: RO-ABBVIE-20K-135-3481757-00

PATIENT
  Age: 76 Year
  Sex: Male

DRUGS (2)
  1. DUODOPA [Suspect]
     Active Substance: CARBIDOPA\LEVODOPA
  2. DUODOPA [Suspect]
     Active Substance: CARBIDOPA\LEVODOPA
     Indication: PARKINSON^S DISEASE
     Dosage: DM=6.50, DC=2.40, ED=1.30, NRED=0; DMN=0.00, DCN=0.00, EDN=0.00 NREDN=0?20 MG/ML 5 MG/ML
     Route: 050
     Dates: start: 20140526

REACTIONS (3)
  - Cardio-respiratory arrest [Fatal]
  - Syncope [Unknown]
  - General physical health deterioration [Unknown]

NARRATIVE: CASE EVENT DATE: 202007
